FAERS Safety Report 8791869 (Version 1)
Quarter: 2012Q4

REPORT INFORMATION
  Report Type: 
  Country: JP (occurrence: JP)
  Receive Date: 20120918
  Receipt Date: 20120918
  Transmission Date: 20130627
  Serious: Yes (Hospitalization)
  Sender: FDA-Public Use
  Company Number: JP-B.I. PHARMACEUTICALS,INC./RIDGEFIELD-2012-BP-22672NB

PATIENT
  Age: 13 Year
  Sex: Male

DRUGS (1)
  1. PERSANTIN [Suspect]
     Indication: IGA NEPHROPATHY
     Dosage: 100 mg
     Route: 048
     Dates: start: 200603

REACTIONS (2)
  - Chronic tonsillitis [Unknown]
  - Prothrombin time prolonged [Unknown]
